FAERS Safety Report 21052427 (Version 1)
Quarter: 2022Q3

REPORT INFORMATION
  Report Type: Spontaneous
  Country: US (occurrence: None)
  Receive Date: 20220706
  Receipt Date: 20220706
  Transmission Date: 20221026
  Serious: No
  Sender: FDA-Public Use
  Company Number: None

PATIENT
  Sex: 0

DRUGS (2)
  1. CYCLOSPORINE [Suspect]
     Active Substance: CYCLOSPORINE
  2. PREDNISONE [Concomitant]
     Active Substance: PREDNISONE
     Dates: start: 20220605, end: 20220706

REACTIONS (2)
  - Asthenia [None]
  - Asthenia [None]
